FAERS Safety Report 7772205-3 (Version None)
Quarter: 2011Q3

REPORT INFORMATION
  Report Type: 
  Country: None (occurrence: None)
  Receive Date: 20110922
  Receipt Date: 20110413
  Transmission Date: 20111222
  Serious: No
  Sender: FDA-Public Use
  Company Number: US-ASTRAZENECA-2009UW12958

PATIENT
  Age: 331 Month
  Sex: Female
  Weight: 68 kg

DRUGS (13)
  1. SEROQUEL [Suspect]
     Indication: INSOMNIA
     Dosage: 100 MG QRN
     Route: 048
     Dates: start: 19980601
  2. SEROQUEL [Suspect]
     Route: 048
     Dates: start: 19990101
  3. ABILIFY [Concomitant]
     Dosage: 5 MG-10 MG
     Dates: start: 20090401
  4. NAVANE [Concomitant]
  5. SEROQUEL [Suspect]
     Route: 048
     Dates: start: 19990101
  6. CLOZAPINE [Concomitant]
  7. ZYPREXA [Concomitant]
     Indication: SCHIZOPHRENIA
     Dates: start: 19960101, end: 19990101
  8. GEODON [Concomitant]
  9. STELAZINE [Concomitant]
  10. NEURONTIN [Concomitant]
     Dosage: 300 MG-600 MG
     Dates: start: 19980915
  11. KLONOPIN [Concomitant]
     Dosage: 0.5 MG-0.10 MG
  12. SEROQUEL [Suspect]
     Indication: SCHIZOPHRENIA
     Dosage: 100 MG QRN
     Route: 048
     Dates: start: 19980601
  13. CELEXA [Concomitant]
     Dosage: 20 MG AM
     Dates: start: 19990209

REACTIONS (6)
  - BLOOD CHOLESTEROL INCREASED [None]
  - WEIGHT INCREASED [None]
  - BLOOD TRIGLYCERIDES INCREASED [None]
  - TYPE 2 DIABETES MELLITUS [None]
  - OBESITY [None]
  - HYPERLIPIDAEMIA [None]
